FAERS Safety Report 21516107 (Version 1)
Quarter: 2022Q4

REPORT INFORMATION
  Report Type: Spontaneous
  Country: US (occurrence: US)
  Receive Date: 20221027
  Receipt Date: 20221027
  Transmission Date: 20230113
  Serious: No
  Sender: FDA-Public Use
  Company Number: US-FOUNDATIONCONSUMERHC-2022-US-017167

PATIENT
  Age: 25 Year
  Sex: Female
  Weight: 107.05 kg

DRUGS (1)
  1. AFTERA [Suspect]
     Active Substance: LEVONORGESTREL
     Indication: Post coital contraception
     Dosage: 1.5 MG X 1 DOSE, TABLET DISSOLVED IN WATER AND CONSUMED
     Route: 048
     Dates: start: 20220712, end: 20220712

REACTIONS (3)
  - Nausea [Not Recovered/Not Resolved]
  - Intentional product misuse [Recovered/Resolved]
  - Incorrect product dosage form administered [Recovered/Resolved]

NARRATIVE: CASE EVENT DATE: 20220712
